FAERS Safety Report 7832526-2 (Version None)
Quarter: 2011Q4

REPORT INFORMATION
  Report Type: 
  Country: None (occurrence: None)
  Receive Date: 20111024
  Receipt Date: 20111014
  Transmission Date: 20120403
  Serious: Yes (Hospitalization)
  Sender: FDA-Public Use
  Company Number: US-BIOGENIDEC-2011BI030701

PATIENT
  Age: 34 Year
  Sex: Female

DRUGS (3)
  1. TYSABRI [Suspect]
     Route: 042
     Dates: start: 20070305, end: 20081026
  2. TYSABRI [Suspect]
     Indication: MULTIPLE SCLEROSIS
     Route: 042
     Dates: start: 20090705
  3. TYSABRI [Suspect]
     Route: 042
     Dates: start: 20050101

REACTIONS (3)
  - LOWER LIMB FRACTURE [None]
  - ANKLE FRACTURE [None]
  - BLISTER [None]
